FAERS Safety Report 20669862 (Version 5)
Quarter: 2022Q3

REPORT INFORMATION
  Report Type: Spontaneous
  Country: US (occurrence: US)
  Receive Date: 20220404
  Receipt Date: 20220902
  Transmission Date: 20221027
  Serious: Yes (Hospitalization, Other)
  Sender: FDA-Public Use
  Company Number: US-PFIZER INC-202101103020

PATIENT
  Age: 68 Year
  Sex: Female
  Weight: 58.112 kg

DRUGS (2)
  1. SUTENT [Suspect]
     Active Substance: SUNITINIB MALATE
     Indication: Renal cell carcinoma
     Dosage: 50 MG, CYCLIC (DAILY FOR 4 WEEKS AND THEN OFF THE MEDICATION FOR TWO WEEKS)
  2. SUTENT [Suspect]
     Active Substance: SUNITINIB MALATE
     Dosage: 37.5 MG, 1X/DAY

REACTIONS (11)
  - Spinal cord compression [Unknown]
  - Foot operation [Unknown]
  - Cancer pain [Unknown]
  - Urinary tract disorder [Not Recovered/Not Resolved]
  - Urethritis [Not Recovered/Not Resolved]
  - Discomfort [Not Recovered/Not Resolved]
  - Hypotension [Recovering/Resolving]
  - Nutritional condition abnormal [Unknown]
  - Tongue discomfort [Not Recovered/Not Resolved]
  - Post procedural complication [Unknown]
  - Fatigue [Unknown]

NARRATIVE: CASE EVENT DATE: 20210701
